FAERS Safety Report 4690418-4 (Version None)
Quarter: 2005Q2

REPORT INFORMATION
  Report Type: 
  Country: None (occurrence: None)
  Receive Date: 20050615
  Receipt Date: 20050421
  Transmission Date: 20051028
  Serious: Yes (Disabling)
  Sender: FDA-Public Use
  Company Number: 2005CG00802

PATIENT
  Age: 23143 Day
  Sex: Male
  Weight: 85 kg

DRUGS (6)
  1. NEXIUM [Suspect]
     Indication: GASTROENTERITIS
     Route: 048
     Dates: start: 20050411, end: 20050416
  2. DAFALGAN [Concomitant]
     Indication: INFLUENZA LIKE ILLNESS
     Route: 048
     Dates: start: 20050409, end: 20050416
  3. ERCEFURYL [Concomitant]
     Indication: GASTROENTERITIS
     Route: 048
     Dates: start: 20050411, end: 20050415
  4. BACTRIM DS [Concomitant]
     Indication: GASTROENTERITIS
     Route: 048
     Dates: start: 20050412, end: 20050415
  5. APROVEL [Concomitant]
     Indication: HYPERTENSION
     Route: 048
  6. SOTALOL HCL [Concomitant]
     Indication: HYPERTENSION
     Route: 048

REACTIONS (3)
  - ACUTE VESTIBULAR SYNDROME [None]
  - ALANINE AMINOTRANSFERASE INCREASED [None]
  - GAMMA-GLUTAMYLTRANSFERASE INCREASED [None]
